FAERS Safety Report 9630820 (Version 1)
Quarter: 2013Q4

REPORT INFORMATION
  Report Type: Spontaneous
  Country: US (occurrence: None)
  Receive Date: 20131015
  Receipt Date: 20131015
  Transmission Date: 20140711
  Serious: Yes (Hospitalization)
  Sender: FDA-Public Use
  Company Number: ACO_38863_2013

PATIENT
  Age: 68 Year
  Sex: Male
  Weight: 88.45 kg

DRUGS (9)
  1. AMPRYA (DALFAMPRIDINE) TABLET [Suspect]
     Indication: GAIT DISTURBANCE
     Route: 048
     Dates: start: 20130602, end: 2013
  2. RAMIPRIL (RAMIPRIL) [Concomitant]
  3. AVODART (DUTASTERIDE) CAPSULES [Concomitant]
  4. TAMSULOSIN HYDROCHLORIDE (TAMSULOSIN HYDROCHLORIDE) [Concomitant]
  5. CRESTOR (ROSUVASTATIN CALCIUM) [Concomitant]
  6. DIMETHYL FUMARATE (DIMETHYL FUMERATE) [Concomitant]
  7. OTHER THERAPEUTIC PRODUCTS [Concomitant]
  8. BACLOFEN (BACLOFEN) [Concomitant]
  9. ASPIRIN (ACETYLSALICYLIC ACID) [Concomitant]

REACTIONS (2)
  - Convulsion [None]
  - Extra dose administered [None]
